FAERS Safety Report 9908030 (Version 1)
Quarter: 2014Q1

REPORT INFORMATION
  Report Type: Spontaneous
  Country: US (occurrence: None)
  Receive Date: 20140214
  Receipt Date: 20140214
  Transmission Date: 20141002
  Serious: Yes (Other)
  Sender: FDA-Public Use
  Company Number: None

PATIENT
  Age: 28 Year
  Sex: Male

DRUGS (1)
  1. HALOPERIDOL [Suspect]
     Route: 048

REACTIONS (4)
  - Dystonia [None]
  - Restlessness [None]
  - Diarrhoea [None]
  - Drug hypersensitivity [None]
